FAERS Safety Report 9603843 (Version 2)
Quarter: 2013Q4

REPORT INFORMATION
  Report Type: Report from Study
  Country: US (occurrence: US)
  Receive Date: 20131008
  Receipt Date: 20131018
  Transmission Date: 20140711
  Serious: Yes (Death)
  Sender: FDA-Public Use
  Company Number: US-009507513-1310USA002070

PATIENT
  Age: 62 Year
  Sex: Male
  Weight: 77.7 kg

DRUGS (3)
  1. VICTRELIS [Suspect]
     Indication: CHRONIC HEPATITIS C
     Dosage: 800 MG (4 CAPS), QD
     Route: 048
     Dates: start: 201307, end: 20130926
  2. PEGINTRON [Suspect]
     Indication: CHRONIC HEPATITIS C
     Dosage: 180 MICROGRAM, QW
     Route: 058
     Dates: start: 201307, end: 20130926
  3. COPEGUS [Suspect]
     Indication: CHRONIC HEPATITIS C
     Dosage: 600 MG DAILY, 2 CAPS QAM, 1 CAP QPM
     Route: 048
     Dates: start: 201307, end: 20130926

REACTIONS (2)
  - Lobar pneumonia [Fatal]
  - Septic shock [Fatal]
